FAERS Safety Report 4812152-X (Version None)
Quarter: 2005Q4

REPORT INFORMATION
  Report Type: 
  Country: None (occurrence: None)
  Receive Date: 20051028
  Receipt Date: 20040902
  Transmission Date: 20060501
  Serious: No
  Sender: FDA-Public Use
  Company Number: US-GLAXOSMITHKLINE-A0524494A

PATIENT
  Age: 78 Year
  Sex: Male

DRUGS (8)
  1. ADVAIR DISKUS 100/50 [Suspect]
     Indication: CHRONIC OBSTRUCTIVE PULMONARY DISEASE
     Dosage: 1PUFF TWICE PER DAY
     Route: 055
     Dates: start: 20020301, end: 20040501
  2. LASIX [Concomitant]
  3. LIPITOR [Concomitant]
  4. COUMADIN [Concomitant]
  5. ALBUTEROL [Concomitant]
  6. IPRATROPIUM BROMIDE [Concomitant]
  7. DILTIAZEM [Concomitant]
  8. DIGITEK [Concomitant]

REACTIONS (4)
  - ASPIRATION [None]
  - DYSPHONIA [None]
  - ORAL CANDIDIASIS [None]
  - VOCAL CORD DISORDER [None]
